FAERS Safety Report 7705707-6 (Version None)
Quarter: 2011Q3

REPORT INFORMATION
  Report Type: 
  Country: None (occurrence: None)
  Receive Date: 20110824
  Receipt Date: 20110816
  Transmission Date: 20111222
  Serious: Yes (Hospitalization)
  Sender: FDA-Public Use
  Company Number: IL-NOVOPROD-333852

PATIENT

DRUGS (4)
  1. SAXAGLIPTIN [Suspect]
     Indication: TYPE 2 DIABETES MELLITUS
     Dosage: UNK
     Dates: start: 20110102, end: 20110121
  2. ASPIRIN [Concomitant]
  3. NOVOLOG [Suspect]
     Indication: TYPE 2 DIABETES MELLITUS
     Dosage: UNK
  4. COUMADIN [Concomitant]
     Dosage: UNK
     Dates: start: 20110404

REACTIONS (2)
  - BLADDER CANCER [None]
  - HYPOGLYCAEMIA [None]
